FAERS Safety Report 23297831 (Version 2)
Quarter: 2024Q1

REPORT INFORMATION
  Report Type: Spontaneous
  Country: PL (occurrence: PL)
  Receive Date: 20231214
  Receipt Date: 20240201
  Transmission Date: 20240410
  Serious: Yes (Life-Threatening, Hospitalization)
  Sender: FDA-Public Use
  Company Number: None

PATIENT
  Age: 52 Year
  Sex: Female
  Weight: 94 kg

DRUGS (4)
  1. TRAMADOL [Interacting]
     Active Substance: TRAMADOL\TRAMADOL HYDROCHLORIDE
     Indication: Sacral pain
     Dosage: 400 MILLIGRAM
     Route: 048
     Dates: end: 20190107
  2. VINPOCETINE [Interacting]
     Active Substance: VINPOCETINE
     Indication: Dizziness
     Dosage: 30 MILLIGRAM
     Route: 048
     Dates: start: 20181215, end: 20190107
  3. PERINDOPRIL [Concomitant]
     Active Substance: PERINDOPRIL
     Dosage: UNK
     Route: 065
  4. DICLOFENAC SODIUM [Concomitant]
     Active Substance: DICLOFENAC\DICLOFENAC SODIUM
     Dosage: UNK
     Route: 065

REACTIONS (3)
  - Convulsive threshold lowered [Recovering/Resolving]
  - Seizure [Recovering/Resolving]
  - Drug interaction [Unknown]

NARRATIVE: CASE EVENT DATE: 20190107
